FAERS Safety Report 11177145 (Version 1)
Quarter: 2015Q2

REPORT INFORMATION
  Report Type: Spontaneous
  Country: GB (occurrence: None)
  Receive Date: 20150608
  Receipt Date: 20150608
  Transmission Date: 20150821
  Serious: No
  Sender: FDA-Public Use
  Company Number: FGB-2015VAL00368

PATIENT
  Age: 66 Year
  Sex: Male

DRUGS (1)
  1. CARBAMAZEPINE (CARBAMAZEPINE) UNKNOWN [Suspect]
     Active Substance: CARBAMAZEPINE
     Indication: EPILEPSY

REACTIONS (10)
  - Osteomalacia [None]
  - Blood urea increased [None]
  - Blood parathyroid hormone increased [None]
  - Vitamin D decreased [None]
  - Blood creatinine increased [None]
  - Femur fracture [None]
  - Hypocalcaemia [None]
  - Renal impairment [None]
  - Blood alkaline phosphatase increased [None]
  - Bone density decreased [None]
